FAERS Safety Report 6677811-5 (Version None)
Quarter: 2010Q2

REPORT INFORMATION
  Report Type: 
  Country: None (occurrence: None)
  Receive Date: 20100412
  Receipt Date: 20100326
  Transmission Date: 20101027
  Serious: No
  Sender: FDA-Public Use
  Company Number: US-ALEXION-A201000367

PATIENT
  Sex: Female

DRUGS (2)
  1. SOLIRIS [Suspect]
     Dosage: 600 MG, QW
     Route: 042
     Dates: start: 20100310
  2. FOLIC ACID [Concomitant]
     Dosage: UNK

REACTIONS (1)
  - PLATELET COUNT DECREASED [None]
